FAERS Safety Report 7860350-3 (Version None)
Quarter: 2011Q4

REPORT INFORMATION
  Report Type: 
  Country: None (occurrence: None)
  Receive Date: 20111027
  Receipt Date: 20111013
  Transmission Date: 20120403
  Serious: Yes (Disabling)
  Sender: FDA-Public Use
  Company Number: PHEH2011US06065

PATIENT
  Sex: Female

DRUGS (6)
  1. DIOVAN [Concomitant]
     Dosage: 80 MG, UNK
     Route: 048
  2. MENEST [Concomitant]
     Route: 048
  3. HYDROCHLOROTHIAZIDE [Concomitant]
     Dosage: 25 MG, UNK
     Route: 048
  4. LEVOTHROID [Concomitant]
     Dosage: 150 MG, UNK
     Route: 048
  5. GLEEVEC [Suspect]
     Indication: CHRONIC MYELOID LEUKAEMIA
     Dosage: 200 MG, BID
     Route: 048
     Dates: start: 20090826, end: 20111008
  6. EFFEXOR XR [Concomitant]
     Dosage: 175 MG, UNK

REACTIONS (2)
  - PARAESTHESIA [None]
  - HYPOAESTHESIA [None]
